FAERS Safety Report 9455758 (Version 1)
Quarter: 2013Q3

REPORT INFORMATION
  Report Type: Spontaneous
  Country: US (occurrence: US)
  Receive Date: 20130813
  Receipt Date: 20130813
  Transmission Date: 20140515
  Serious: Yes (Other)
  Sender: FDA-Public Use
  Company Number: US-JNJFOC-20130802559

PATIENT
  Age: 53 Year
  Sex: Male
  Weight: 117.03 kg

DRUGS (4)
  1. XARELTO [Suspect]
     Indication: PULMONARY EMBOLISM
     Route: 048
     Dates: start: 20130802
  2. XARELTO [Suspect]
     Indication: PULMONARY EMBOLISM
     Route: 048
     Dates: start: 20130802
  3. PRILOSEC [Concomitant]
     Route: 065
  4. TESTOSTERONE [Concomitant]
     Route: 065

REACTIONS (3)
  - Petechiae [Unknown]
  - Drug prescribing error [Unknown]
  - Pruritus [Unknown]
